FAERS Safety Report 6712016-0 (Version None)
Quarter: 2010Q2

REPORT INFORMATION
  Report Type: 
  Country: None (occurrence: None)
  Receive Date: 20100505
  Receipt Date: 20100423
  Transmission Date: 20101027
  Serious: Yes (Death, Hospitalization)
  Sender: FDA-Public Use
  Company Number: PL-PFIZER INC-2006037088

PATIENT
  Age: 58 Year
  Sex: Male
  Weight: 62 kg

DRUGS (36)
  1. SUNITINIB MALATE [Suspect]
     Indication: RENAL CELL CARCINOMA
     Dosage: 50 MG, 1X/DAY
     Route: 048
     Dates: start: 20051123, end: 20060121
  2. SUNITINIB MALATE [Suspect]
     Dosage: 50 MG, 1X/DAY
     Route: 048
     Dates: start: 20060203, end: 20060214
  3. SUNITINIB MALATE [Suspect]
     Dosage: 50 MG, 1X/DAY
     Route: 048
     Dates: start: 20060228, end: 20060310
  4. CYCLONAMINE [Concomitant]
     Dosage: UNK
     Route: 042
     Dates: start: 20060122, end: 20060124
  5. CYCLONAMINE [Concomitant]
     Route: 048
     Dates: start: 20060303
  6. EXACYL [Concomitant]
     Dosage: UNK
     Route: 042
     Dates: start: 20060122, end: 20060124
  7. EXACYL [Concomitant]
     Dosage: UNK
     Route: 048
     Dates: start: 20060303
  8. CONTROLOC [Concomitant]
     Dosage: UNK
     Route: 042
     Dates: start: 20060122, end: 20060224
  9. ZOFRAN [Concomitant]
     Dosage: UNK
     Route: 042
     Dates: start: 20060122, end: 20060124
  10. METOCLOPRAMIDE HYDROCHLORIDE [Concomitant]
     Dosage: UNK
     Route: 042
     Dates: start: 20060122, end: 20060224
  11. DEXTROSE [Concomitant]
     Dosage: UNK
     Route: 042
     Dates: start: 20060122, end: 20060202
  12. SOLUTIO RINGERI ^CIV^ [Concomitant]
     Dosage: UNK
     Route: 042
     Dates: start: 20060122, end: 20060224
  13. CHLORPROMAZINE HYDROCHLORIDE [Concomitant]
     Dosage: UNK
     Route: 042
     Dates: start: 20060122, end: 20060224
  14. DEXTRAN INJ [Concomitant]
     Dosage: UNK
     Route: 042
     Dates: start: 20060122, end: 20060124
  15. DEXTRAN INJ [Concomitant]
     Dosage: UNK
     Route: 042
     Dates: start: 20060301, end: 20060311
  16. PYRALGIN [Concomitant]
     Dosage: UNK
     Route: 048
     Dates: start: 20060124
  17. NO-SPA [Concomitant]
     Dosage: UNK
     Route: 042
     Dates: start: 20060124, end: 20060224
  18. IMIPENEM AND CILASTATIN [Concomitant]
     Dosage: UNK
     Route: 042
     Dates: start: 20060124, end: 20060131
  19. METRONIDAZOLE [Concomitant]
     Dosage: UNK
     Route: 042
     Dates: start: 20060124, end: 20060131
  20. HYDROCORTISONE [Concomitant]
     Dosage: UNK
     Route: 042
     Dates: start: 20060124, end: 20060224
  21. FUROSEMIDE [Concomitant]
     Dosage: UNK
     Route: 048
     Dates: start: 20060121
  22. CITALOPRAM HYDROBROMIDE [Concomitant]
     Dosage: UNK
     Route: 048
     Dates: start: 20060128, end: 20060224
  23. AMIZEPIN [Concomitant]
     Dosage: UNK
     Route: 048
     Dates: start: 20060128
  24. PERNAZINUM [Concomitant]
     Dosage: UNK
     Route: 048
     Dates: start: 20060128, end: 20060224
  25. HYDROXYZINE [Concomitant]
     Dosage: UNK
     Route: 030
     Dates: start: 20060128, end: 20060224
  26. KALDYUM [Concomitant]
     Dosage: UNK
     Route: 048
     Dates: start: 20060128
  27. CALCIUM [Concomitant]
     Dosage: UNK
     Route: 048
     Dates: start: 20060130
  28. FRAXIPARINE [Concomitant]
     Dosage: UNK
     Route: 058
     Dates: start: 20060128
  29. DURAGESIC-100 [Concomitant]
     Dosage: UNK
     Route: 062
     Dates: start: 20051001
  30. SEVREDOL [Concomitant]
     Dosage: UNK
     Route: 048
     Dates: start: 20060224
  31. KETONAL [Concomitant]
     Dosage: UNK
     Route: 048
     Dates: start: 20060202
  32. PARACETAMOL [Concomitant]
     Dosage: UNK
     Route: 048
     Dates: start: 20060202
  33. POLPRAZOL [Concomitant]
     Dosage: UNK
     Route: 048
     Dates: start: 20060224
  34. SIRDALUD [Concomitant]
     Dosage: UNK
     Route: 048
     Dates: start: 20060224
  35. ESPUMISAN [Concomitant]
     Dosage: UNK
     Route: 048
     Dates: start: 20060224
  36. LOPERAMIDE [Concomitant]
     Dosage: UNK
     Route: 048
     Dates: start: 20060303

REACTIONS (5)
  - CARDIOVASCULAR DISORDER [None]
  - DEHYDRATION [None]
  - GASTROINTESTINAL HAEMORRHAGE [None]
  - SUBILEUS [None]
  - VOMITING [None]
